FAERS Safety Report 14176184 (Version 3)
Quarter: 2019Q4

REPORT INFORMATION
  Report Type: Spontaneous
  Country: US (occurrence: US)
  Receive Date: 20171109
  Receipt Date: 20191114
  Transmission Date: 20200122
  Serious: No
  Sender: FDA-Public Use
  Company Number: US-ACTELION-A-US2017-162181

PATIENT
  Sex: Female

DRUGS (12)
  1. PROBIOTIC [Concomitant]
     Active Substance: PROBIOTICS NOS
     Dosage: UNK
     Dates: start: 20170829
  2. D-HIST D [Concomitant]
  3. COD LIVER OIL [Concomitant]
     Active Substance: COD LIVER OIL
     Dosage: UNK
     Dates: start: 20170829
  4. VITAMIN D2 [Concomitant]
     Active Substance: ERGOCALCIFEROL
     Dosage: 400 IU, QD
     Dates: start: 20170829
  5. FISH OIL 1-A-DAY + VITAMIN D3 [Concomitant]
     Dosage: UNK
     Dates: start: 20170829
  6. GABA [Concomitant]
     Active Substance: HOMEOPATHICS
     Dosage: UNK
     Dates: start: 20170829
  7. ZAVESCA [Suspect]
     Active Substance: MIGLUSTAT
     Indication: NIEMANN-PICK DISEASE
     Dosage: 100 MG, TID
     Route: 048
     Dates: start: 20170831
  8. ASCORBIC ACID. [Concomitant]
     Active Substance: ASCORBIC ACID
     Dosage: 300 MG
     Route: 048
     Dates: start: 20190829
  9. BROMELAIN [Concomitant]
     Active Substance: BROMELAINS
     Dosage: 100 MG
     Route: 048
     Dates: start: 20170829
  10. LEUCOVORIN CALCIUM. [Concomitant]
     Active Substance: LEUCOVORIN CALCIUM
     Dosage: 5 MG, UNK
     Route: 048
     Dates: start: 20170829
  11. MAGNESIUM [Concomitant]
     Active Substance: MAGNESIUM
     Dosage: 100 MG, UNK
     Route: 048
     Dates: start: 20170829
  12. QUERCETIN DIHYDRATE [Concomitant]
     Dosage: 400 MG, QD
     Route: 048

REACTIONS (5)
  - Product dose omission [Unknown]
  - Nasopharyngitis [Unknown]
  - Diarrhoea [Unknown]
  - Malaise [Unknown]
  - Viral infection [Unknown]
